FAERS Safety Report 10240546 (Version 1)
Quarter: 2014Q2

REPORT INFORMATION
  Report Type: Spontaneous
  Country: US (occurrence: None)
  Receive Date: 20140613
  Receipt Date: 20140613
  Transmission Date: 20141212
  Serious: Yes (Hospitalization, Other)
  Sender: FDA-Public Use
  Company Number: None

PATIENT
  Age: 67 Year
  Sex: Female
  Weight: 40.82 kg

DRUGS (13)
  1. TAMIFLU [Suspect]
     Indication: PNEUMONIA
     Dosage: 75 MCG, 10 CAPS. 1X2 PER DAY BY MOUTH
     Route: 048
     Dates: start: 20140225, end: 20140225
  2. MAGNESIUM OXIDE [Concomitant]
  3. DRONALINAL - WASN^T TAKING ANY DRUGS AT TIME OF INCIDENT [Concomitant]
  4. BODY BALANCE MULTI-VIT/MINERALS [Concomitant]
  5. QUNAL CAP 10 [Concomitant]
  6. LIQUID CALCIUM [Concomitant]
  7. OMEGA 3 FISH OIL [Concomitant]
  8. VIT. E [Concomitant]
  9. DHEA [Concomitant]
  10. VALERION ROOT [Concomitant]
  11. PROBIOTICS [Concomitant]
  12. DIGESTIVE EMGYMOS [Concomitant]
  13. NIGHT REST (BU SOURCE NATURALS) [Concomitant]

REACTIONS (2)
  - Myocardial infarction [None]
  - Anaphylactic shock [None]
